FAERS Safety Report 25623463 (Version 1)
Quarter: 2025Q3

REPORT INFORMATION
  Report Type: Spontaneous
  Country: US (occurrence: US)
  Receive Date: 20250730
  Receipt Date: 20250730
  Transmission Date: 20251021
  Serious: Yes (Other)
  Sender: TAKEDA
  Company Number: US-TAKEDA-2025TUS067481

PATIENT

DRUGS (3)
  1. ENTYVIO [Suspect]
     Active Substance: VEDOLIZUMAB
     Indication: Colitis ulcerative
  2. VELSIPITY [Concomitant]
     Active Substance: ETRASIMOD ARGININE
     Indication: Colitis
  3. RINVOQ [Concomitant]
     Active Substance: UPADACITINIB
     Indication: Colitis

REACTIONS (1)
  - Colitis ulcerative [Unknown]
